FAERS Safety Report 8523736 (Version 4)
Quarter: 2012Q4

REPORT INFORMATION
  Report Type: Report from Study
  Country: JP (occurrence: JP)
  Receive Date: 20120420
  Receipt Date: 20121231
  Transmission Date: 20130627
  Serious: Yes (Death, Hospitalization, Other)
  Sender: FDA-Public Use
  Company Number: PHHY2011JP105779

PATIENT
  Age: 78 Year
  Sex: Male
  Weight: 66 kg

DRUGS (6)
  1. ALISKIREN [Suspect]
     Indication: HYPERTENSION
     Dosage: 150 mg, daily
     Route: 048
     Dates: start: 20101007, end: 20110826
  2. DIOVAN [Concomitant]
     Indication: HYPERTENSION
     Dosage: 160 mg, UNK
     Route: 048
     Dates: start: 20051007, end: 20110826
  3. ATELEC [Concomitant]
     Indication: HYPERTENSION
     Dosage: 20 mg, UNK
     Route: 048
     Dates: start: 20090715, end: 20110826
  4. ZYLORIC [Concomitant]
     Dosage: 100 mg, UNK
     Route: 048
     Dates: start: 20051007, end: 20110826
  5. LIPIDIL [Concomitant]
     Dosage: 100 mg, UNK
     Route: 048
     Dates: start: 20100909, end: 20110826
  6. SELBEX [Concomitant]
     Dosage: 100 mg, UNK
     Route: 048
     Dates: start: 20080609, end: 20110826

REACTIONS (7)
  - Respiratory arrest [Fatal]
  - Haemorrhage [Fatal]
  - Blood urea increased [Unknown]
  - Blood creatinine increased [Unknown]
  - Angina pectoris [Unknown]
  - Haematocrit decreased [Unknown]
  - Haemoglobin decreased [Unknown]
